FAERS Safety Report 5808894-X (Version None)
Quarter: 2008Q3

REPORT INFORMATION
  Report Type: 
  Country: None (occurrence: None)
  Receive Date: 20080714
  Receipt Date: 20080707
  Transmission Date: 20090109
  Serious: Yes (Hospitalization)
  Sender: FDA-Public Use
  Company Number: CG-MERCK-0807USA01038

PATIENT
  Age: 60 Year
  Sex: Female

DRUGS (1)
  1. STROMECTOL [Suspect]
     Indication: ONCHOCERCIASIS
     Route: 065
     Dates: start: 20071127

REACTIONS (5)
  - CONJUNCTIVAL HAEMORRHAGE [None]
  - DIARRHOEA [None]
  - LACRIMATION INCREASED [None]
  - PRURITUS [None]
  - PYREXIA [None]
